FAERS Safety Report 13349789 (Version 1)
Quarter: 2017Q1

REPORT INFORMATION
  Report Type: Report from Study
  Country: GB (occurrence: GB)
  Receive Date: 20170320
  Receipt Date: 20170320
  Transmission Date: 20170429
  Serious: Yes (Other)
  Sender: FDA-Public Use
  Company Number: GB-BRISTOL-MYERS SQUIBB COMPANY-BMS-2016-102466

PATIENT
  Sex: Female

DRUGS (1)
  1. ABATACEPT [Suspect]
     Active Substance: ABATACEPT
     Indication: RHEUMATOID ARTHRITIS
     Dosage: 125 MG, QWK
     Route: 058
     Dates: start: 20161005

REACTIONS (7)
  - Cough [Unknown]
  - Product quality issue [Unknown]
  - Laceration [Unknown]
  - Localised infection [Not Recovered/Not Resolved]
  - Malaise [Unknown]
  - Haemorrhage [Unknown]
  - Skin atrophy [Unknown]
